FAERS Safety Report 24524175 (Version 1)
Quarter: 2024Q4

REPORT INFORMATION
  Report Type: Spontaneous
  Country: US (occurrence: US)
  Receive Date: 20241018
  Receipt Date: 20241018
  Transmission Date: 20250114
  Serious: Yes (Other)
  Sender: GILEAD
  Company Number: US-GILEAD-2024-0690944

PATIENT
  Age: 60 Year
  Sex: Male

DRUGS (6)
  1. TYBOST [Interacting]
     Active Substance: COBICISTAT
     Indication: HIV infection
     Route: 065
  2. OXYCODONE [Interacting]
     Active Substance: OXYCODONE
     Indication: Analgesic therapy
     Route: 065
  3. FENTANYL [Concomitant]
     Active Substance: FENTANYL
  4. VENLAFAXINE [Concomitant]
     Active Substance: VENLAFAXINE HYDROCHLORIDE
  5. MEPERIDINE [Concomitant]
     Active Substance: MEPERIDINE
  6. FLUCONAZOLE [Concomitant]
     Active Substance: FLUCONAZOLE
     Indication: HIV infection

REACTIONS (2)
  - Serotonin syndrome [Recovering/Resolving]
  - Drug interaction [Recovered/Resolved]
